FAERS Safety Report 8366766-3 (Version None)
Quarter: 2012Q2

REPORT INFORMATION
  Report Type: 
  Country: None (occurrence: None)
  Receive Date: 20120517
  Receipt Date: 20120514
  Transmission Date: 20120825
  Serious: Yes (Hospitalization)
  Sender: FDA-Public Use
  Company Number: DE-ROCHE-1069131

PATIENT
  Sex: Female

DRUGS (13)
  1. MABTHERA [Suspect]
     Indication: RHEUMATOID ARTHRITIS
     Dates: start: 20071113
  2. LEVOTHYROXINE SODIUM [Concomitant]
  3. PREDNISONE TAB [Concomitant]
     Dates: start: 20101108
  4. DRONEDARONE HCL [Concomitant]
  5. METOPROLOL SUCCINATE [Concomitant]
     Indication: HYPERTENSION
  6. ATACAND [Concomitant]
  7. TORSEMIDE [Concomitant]
  8. OMEPRAZOLE [Concomitant]
  9. DIGITOXIN TAB [Concomitant]
  10. DEKRISTOL [Concomitant]
  11. AMITRIPTYLINE HCL [Concomitant]
  12. MARCUMAR [Concomitant]
  13. ALLOPURINOL [Concomitant]

REACTIONS (1)
  - ISCHAEMIC CEREBRAL INFARCTION [None]
